FAERS Safety Report 9463549 (Version 1)
Quarter: 2013Q3

REPORT INFORMATION
  Report Type: Spontaneous
  Country: US (occurrence: US)
  Receive Date: 20130819
  Receipt Date: 20130819
  Transmission Date: 20140515
  Serious: No
  Sender: FDA-Public Use
  Company Number: US-009507513-1308USA004652

PATIENT
  Age: 26 Year
  Sex: Female
  Weight: 43.84 kg

DRUGS (1)
  1. IMPLANON [Suspect]
     Indication: CONTRACEPTION
     Dosage: EVERY 3 YEARS, 1 ROD
     Route: 059
     Dates: start: 20130424

REACTIONS (3)
  - Dizziness [Unknown]
  - Headache [Unknown]
  - Menstruation irregular [Unknown]
